FAERS Safety Report 8635481 (Version 2)
Quarter: 2012Q4

REPORT INFORMATION
  Report Type: Report from Study
  Country: IT (occurrence: IT)
  Receive Date: 20120626
  Receipt Date: 20120928
  Transmission Date: 20130627
  Serious: Yes (Hospitalization)
  Sender: FDA-Public Use
  Company Number: IT-ROCHE-1081463

PATIENT
  Age: 77 Year
  Sex: Male

DRUGS (6)
  1. MABTHERA [Suspect]
     Indication: NON-HODGKIN^S LYMPHOMA
     Route: 042
     Dates: start: 20111102, end: 20111102
  2. ENDOXAN [Concomitant]
     Route: 042
     Dates: start: 20111020, end: 20111020
  3. VINCRISTINA [Concomitant]
     Route: 042
     Dates: start: 20111020, end: 20111020
  4. DELTACORTENE [Concomitant]
     Route: 048
     Dates: start: 20111021, end: 20111024
  5. NEXIUM [Concomitant]
     Route: 048
  6. CLEXANE [Concomitant]
     Route: 058

REACTIONS (4)
  - Anaphylactic reaction [Recovered/Resolved]
  - Dyspnoea [Recovered/Resolved]
  - Hypertension [Recovered/Resolved]
  - Investigation abnormal [Recovered/Resolved]
